FAERS Safety Report 18233905 (Version 1)
Quarter: 2020Q3

REPORT INFORMATION
  Report Type: Spontaneous
  Country: GB (occurrence: GB)
  Receive Date: 20200904
  Receipt Date: 20200904
  Transmission Date: 20201103
  Serious: Yes (Life-Threatening)
  Sender: FDA-Public Use
  Company Number: GB-TEVA-2020-GB-1822719

PATIENT
  Age: 18 Year
  Sex: Female

DRUGS (1)
  1. NITROFURANTOIN. [Suspect]
     Active Substance: NITROFURANTOIN
     Indication: URINARY TRACT INFECTION
     Route: 048
     Dates: start: 20200724, end: 20200726

REACTIONS (7)
  - Supraventricular tachycardia [Recovering/Resolving]
  - Anaphylactic reaction [Unknown]
  - Vasculitis [Not Recovered/Not Resolved]
  - Cough [Unknown]
  - Pulmonary haemorrhage [Not Recovered/Not Resolved]
  - Fatigue [Unknown]
  - Haemoptysis [Unknown]

NARRATIVE: CASE EVENT DATE: 20200728
